FAERS Safety Report 9038038 (Version 2)
Quarter: 2013Q3

REPORT INFORMATION
  Report Type: Report from Study
  Country: UA (occurrence: UA)
  Receive Date: 20130129
  Receipt Date: 20130716
  Transmission Date: 20140515
  Serious: Yes (Death)
  Sender: FDA-Public Use
  Company Number: UA-PFIZER INC-2012165815

PATIENT
  Age: 70 Year
  Sex: Male
  Weight: 101 kg

DRUGS (2)
  1. TOFACITINIB CITRATE [Suspect]
     Indication: PSORIASIS
     Dosage: 5 MG, 2X/DAY
     Route: 048
     Dates: start: 20111003, end: 20120604
  2. LIPRAZIDUM [Concomitant]
     Indication: HYPERTENSION
     Dosage: 0.01 MG, 1X/DAY
     Route: 048
     Dates: start: 200704

REACTIONS (1)
  - Lung neoplasm malignant [Fatal]
